FAERS Safety Report 4927600-4 (Version None)
Quarter: 2006Q1

REPORT INFORMATION
  Report Type: 
  Country: None (occurrence: None)
  Receive Date: 20060228
  Receipt Date: 20030407
  Transmission Date: 20060701
  Serious: Yes (Hospitalization, Disabling)
  Sender: FDA-Public Use
  Company Number: US-MERCK-0304USA00740

PATIENT
  Age: 50 Year
  Sex: Female
  Weight: 89 kg

DRUGS (7)
  1. VIOXX [Suspect]
     Indication: INFLAMMATION
     Route: 048
     Dates: start: 20000501, end: 20020101
  2. IBUPROFEN [Concomitant]
     Route: 065
  3. FEOSOL [Concomitant]
     Route: 065
  4. ATENOLOL [Concomitant]
     Route: 065
  5. PREVACID [Concomitant]
     Route: 065
  6. RELAFEN [Concomitant]
     Route: 065
  7. TYLENOL (CAPLET) [Concomitant]
     Route: 065

REACTIONS (14)
  - BACK PAIN [None]
  - CHEST PAIN [None]
  - CONVERSION DISORDER [None]
  - CONVULSION [None]
  - DYSPEPSIA [None]
  - GASTRITIS [None]
  - HIATUS HERNIA [None]
  - HYPERTENSION [None]
  - INFLAMMATION [None]
  - INJURY [None]
  - MENISCUS LESION [None]
  - PAIN IN EXTREMITY [None]
  - PEPTIC ULCER HAEMORRHAGE [None]
  - TRANSIENT ISCHAEMIC ATTACK [None]
